FAERS Safety Report 9756581 (Version 1)
Quarter: 2013Q4

REPORT INFORMATION
  Report Type: Spontaneous
  Country: US (occurrence: US)
  Receive Date: 20131213
  Receipt Date: 20131213
  Transmission Date: 20140711
  Serious: No
  Sender: FDA-Public Use
  Company Number: US-GLAXOSMITHKLINE-A1047029A

PATIENT
  Age: 55 Year
  Sex: Female
  Weight: 86 kg

DRUGS (1)
  1. NICODERM CQ CLEAR 21MG [Suspect]
     Indication: EX-TOBACCO USER
     Route: 062

REACTIONS (6)
  - Application site pain [Recovered/Resolved]
  - Application site reaction [Not Recovered/Not Resolved]
  - Application site discolouration [Not Recovered/Not Resolved]
  - Abnormal dreams [Recovered/Resolved]
  - Drug administration error [Unknown]
  - Product quality issue [Unknown]
